FAERS Safety Report 10618278 (Version 36)
Quarter: 2017Q1

REPORT INFORMATION
  Report Type: Report from Study
  Country: CA (occurrence: CA)
  Receive Date: 20141202
  Receipt Date: 20170209
  Transmission Date: 20170428
  Serious: Yes (Hospitalization, Other)
  Sender: FDA-Public Use
  Company Number: CA-ROCHE-794571

PATIENT
  Age: 68 Year
  Sex: Male
  Weight: 96 kg

DRUGS (23)
  1. ACTEMRA [Suspect]
     Active Substance: TOCILIZUMAB
     Indication: RHEUMATOID ARTHRITIS
     Route: 042
     Dates: start: 20101007, end: 20161215
  2. ACTEMRA [Suspect]
     Active Substance: TOCILIZUMAB
     Route: 042
     Dates: start: 20110519
  3. ACTEMRA [Suspect]
     Active Substance: TOCILIZUMAB
     Route: 042
     Dates: start: 20151001
  4. INDAPAMIDE. [Concomitant]
     Active Substance: INDAPAMIDE
  5. ACTEMRA [Suspect]
     Active Substance: TOCILIZUMAB
     Route: 042
     Dates: start: 20140416
  6. ACTEMRA [Suspect]
     Active Substance: TOCILIZUMAB
     Route: 042
     Dates: start: 20140710
  7. PLAQUENIL [Concomitant]
     Active Substance: HYDROXYCHLOROQUINE SULFATE
  8. APO-HYDROXYQUINE [Concomitant]
     Active Substance: HYDROXYCHLOROQUINE SULFATE
  9. NAPROXEN. [Concomitant]
     Active Substance: NAPROXEN
  10. METHOTREXATE. [Concomitant]
     Active Substance: METHOTREXATE
     Dosage: INCREASED DOSE TO 15 MG PER WEEK
     Route: 065
  11. ACTEMRA [Suspect]
     Active Substance: TOCILIZUMAB
     Route: 042
     Dates: start: 2005
  12. XANAX [Concomitant]
     Active Substance: ALPRAZOLAM
  13. INDAPAMIDE. [Concomitant]
     Active Substance: INDAPAMIDE
  14. ACTEMRA [Suspect]
     Active Substance: TOCILIZUMAB
     Route: 042
     Dates: start: 20101105
  15. ALPRAZOLAM. [Concomitant]
     Active Substance: ALPRAZOLAM
  16. APO-OMEPRAZOLE [Concomitant]
     Active Substance: OMEPRAZOLE
  17. ACTEMRA [Suspect]
     Active Substance: TOCILIZUMAB
     Route: 042
     Dates: start: 20110908
  18. ZOLADEX LA [Suspect]
     Active Substance: GOSERELIN ACETATE
     Indication: PROSTATE CANCER
     Route: 058
     Dates: start: 201412
  19. VENTOLIN [Concomitant]
     Active Substance: ALBUTEROL SULFATE
  20. HYDROXYCHLOROQUINE [Concomitant]
     Active Substance: HYDROXYCHLOROQUINE
  21. ACTEMRA [Suspect]
     Active Substance: TOCILIZUMAB
     Route: 042
     Dates: start: 20140123
  22. ACTEMRA [Suspect]
     Active Substance: TOCILIZUMAB
     Route: 042
     Dates: start: 20150319
  23. LYRICA [Suspect]
     Active Substance: PREGABALIN
     Indication: PRODUCT USED FOR UNKNOWN INDICATION
     Route: 065

REACTIONS (29)
  - Upper limb fracture [Recovering/Resolving]
  - Breast enlargement [Unknown]
  - Blood pressure increased [Recovering/Resolving]
  - Blood pressure increased [Unknown]
  - Peripheral swelling [Not Recovered/Not Resolved]
  - Scab [Recovered/Resolved]
  - Insomnia [Not Recovered/Not Resolved]
  - Arthralgia [Unknown]
  - Wound infection [Unknown]
  - Cellulitis [Not Recovered/Not Resolved]
  - Arthritis [Not Recovered/Not Resolved]
  - Prostatic specific antigen increased [Not Recovered/Not Resolved]
  - Prostate cancer [Not Recovered/Not Resolved]
  - Infusion related reaction [Unknown]
  - Nasopharyngitis [Unknown]
  - Oedema [Recovering/Resolving]
  - Skin fragility [Recovered/Resolved]
  - Fall [Unknown]
  - Swelling [Unknown]
  - Hot flush [Unknown]
  - Pain [Not Recovered/Not Resolved]
  - Gastrointestinal motility disorder [Unknown]
  - Joint swelling [Not Recovered/Not Resolved]
  - Back pain [Unknown]
  - Blood pressure systolic increased [Unknown]
  - Malignant melanoma [Not Recovered/Not Resolved]
  - Oxygen saturation decreased [Unknown]
  - Musculoskeletal pain [Not Recovered/Not Resolved]
  - Musculoskeletal stiffness [Not Recovered/Not Resolved]

NARRATIVE: CASE EVENT DATE: 20101014
